FAERS Safety Report 9478761 (Version 3)
Quarter: 2013Q4

REPORT INFORMATION
  Report Type: Spontaneous
  Country: FR (occurrence: FR)
  Receive Date: 20130827
  Receipt Date: 20131021
  Transmission Date: 20140711
  Serious: Yes (Hospitalization, Other)
  Sender: FDA-Public Use
  Company Number: FR-TEVA-428221ISR

PATIENT
  Age: 29 Year
  Sex: Female

DRUGS (3)
  1. COPAXONE [Suspect]
     Indication: MULTIPLE SCLEROSIS
     Dosage: 1 DOSAGE FORMS DAILY;
     Route: 058
     Dates: start: 201209, end: 20130610
  2. DOLIPRANE [Concomitant]
  3. MICROVAL [Concomitant]
     Indication: CONTRACEPTION
     Dosage: LONG TERM TREATMENT

REACTIONS (6)
  - Crohn^s disease [Unknown]
  - Weight decreased [Unknown]
  - Oedema mouth [Unknown]
  - Diarrhoea [Unknown]
  - Enteritis [Unknown]
  - Diarrhoea [Unknown]
